FAERS Safety Report 9185539 (Version 1)
Quarter: 2012Q4

REPORT INFORMATION
  Report Type: 
  Country: US (occurrence: US)
  Receive Date: 20121031
  Receipt Date: 20121031
  Transmission Date: 20130627
  Serious: Yes (Other)
  Sender: FDA-Public Use
  Company Number: US-BAYER-2012-113597

PATIENT
  Age: 35 Year
  Sex: Female

DRUGS (1)
  1. OCELLA [Suspect]

REACTIONS (1)
  - Pulmonary embolism [None]
